FAERS Safety Report 5082689-X (Version None)
Quarter: 2006Q3

REPORT INFORMATION
  Report Type: 
  Country: None (occurrence: None)
  Receive Date: 20060816
  Receipt Date: 20060816
  Transmission Date: 20061208
  Serious: Yes (Hospitalization)
  Sender: FDA-Public Use
  Company Number: None

PATIENT
  Sex: Male
  Weight: 73 kg

DRUGS (7)
  1. TEMOZOLOMIDE 75MG/M2 ON DAYS 1-5 FOR 28 DAY CYCLE [Suspect]
     Indication: GLIOBLASTOMA MULTIFORME
     Dosage: PO 130MG DAILY X 5
     Route: 048
     Dates: start: 20060512, end: 20060516
  2. O6BG 120MG M2 BOLUS 1 HR INFUSIONX 3 OVER 5 DAYS; O6BG 30MG/M2 CONTINU [Suspect]
     Indication: GLIOBLASTOMA MULTIFORME
     Dosage: IV MG BOLUS, 208MG CONTINUOUS
     Route: 040
     Dates: start: 20060512, end: 20060516
  3. DETROL LA [Concomitant]
  4. LORAZEPAM [Concomitant]
  5. ZANTAC [Concomitant]
  6. DECADRON [Concomitant]
  7. MULTI-VITAMIN W/IRON + CALCIUM  PO D [Concomitant]

REACTIONS (3)
  - CHOKING [None]
  - CONVULSION [None]
  - LOSS OF CONSCIOUSNESS [None]
